FAERS Safety Report 9459314 (Version 1)
Quarter: 2013Q3

REPORT INFORMATION
  Report Type: Report from Study
  Country: HU (occurrence: HU)
  Receive Date: 20130815
  Receipt Date: 20130815
  Transmission Date: 20140515
  Serious: Yes (Hospitalization)
  Sender: FDA-Public Use
  Company Number: HU-ROCHE-1218436

PATIENT
  Sex: Male

DRUGS (3)
  1. XELODA [Suspect]
     Indication: COLORECTAL CANCER
     Route: 048
     Dates: start: 20130410, end: 201304
  2. XELODA [Suspect]
     Route: 048
     Dates: start: 201304
  3. OXALIPLATIN [Concomitant]
     Indication: COLORECTAL CANCER
     Route: 065

REACTIONS (6)
  - Jaundice [Unknown]
  - Dehydration [Unknown]
  - Oliguria [Unknown]
  - Decreased appetite [Unknown]
  - Constipation [Unknown]
  - Hypotension [Unknown]
